FAERS Safety Report 8291301-8 (Version None)
Quarter: 2012Q2

REPORT INFORMATION
  Report Type: 
  Country: None (occurrence: None)
  Receive Date: 20120417
  Receipt Date: 20110720
  Transmission Date: 20120825
  Serious: No
  Sender: FDA-Public Use
  Company Number: US-PFIZER INC-2012016988

PATIENT
  Age: 27 Year
  Sex: Female

DRUGS (1)
  1. LO/OVRAL-28 [Suspect]
     Indication: CONTRACEPTION
     Dosage: UNK; DAILY
     Route: 048
     Dates: start: 20110710

REACTIONS (2)
  - MUSCLE SPASMS [None]
  - JOINT SWELLING [None]
